FAERS Safety Report 8833469 (Version 3)
Quarter: 2012Q4

REPORT INFORMATION
  Report Type: Report from Study
  Country: US (occurrence: US)
  Receive Date: 20121010
  Receipt Date: 20121025
  Transmission Date: 20130627
  Serious: No
  Sender: FDA-Public Use
  Company Number: US-VERTEX PHARMACEUTICAL INC.-2012-021962

PATIENT
  Sex: Female
  Weight: 67 kg

DRUGS (12)
  1. VX-770 [Suspect]
     Indication: CYSTIC FIBROSIS
     Dosage: 150 mg, bid
     Route: 048
     Dates: start: 20120214
  2. VITAMAX [Concomitant]
     Dosage: 2 Tab, qd
     Route: 048
  3. VITAMIN D /00107901/ [Concomitant]
     Dosage: 4 tab 1000 units qd
  4. MIRALAX                            /00754501/ [Concomitant]
     Dosage: 1 UNK, prn
  5. FLONASE [Concomitant]
     Dosage: 2 UNK, qd
     Route: 045
  6. AZITHROMYCIN [Concomitant]
     Dosage: 500 mg, every Mon Wed Fri
     Route: 048
  7. ALLEGRA [Concomitant]
     Dosage: 60 mg, bid
     Route: 048
  8. XOPENEX [Concomitant]
     Dosage: 4 Puffs, bid
  9. PULMOZYME [Concomitant]
     Dosage: 2.5mg/2.5ml, at bedtime
     Route: 055
  10. DULERA [Concomitant]
     Dosage: 2 puffs, bid
  11. SALINEX NASAL [Concomitant]
     Dosage: UNK, bid
  12. ZANTAC [Concomitant]
     Dosage: 150 mg, bid
     Route: 048

REACTIONS (2)
  - Skin striae [Unknown]
  - Weight increased [Unknown]
